FAERS Safety Report 4647048-X (Version None)
Quarter: 2005Q2

REPORT INFORMATION
  Report Type: 
  Country: None (occurrence: None)
  Receive Date: 20050331
  Receipt Date: 20050222
  Transmission Date: 20051028
  Serious: No
  Sender: FDA-Public Use
  Company Number: 04P-163-0270478-00

PATIENT
  Age: 61 Year
  Sex: Female
  Weight: 114 kg

DRUGS (9)
  1. HUMIRA [Suspect]
     Indication: RHEUMATOID ARTHRITIS
     Dosage: 40 MG, 1 IN 2 WK, SUBCUTANEOUS
     Route: 058
     Dates: start: 20030101
  2. FLUOXETINE HCL [Concomitant]
  3. ATORVASTATIN CALCIUM [Concomitant]
  4. OXYCODONE HCL [Concomitant]
  5. ESOMEPRAZOLE [Concomitant]
  6. ESTRADIOL [Concomitant]
  7. TRAZODONE HCL [Concomitant]
  8. VYTORIN [Concomitant]
  9. ASPIRIN [Concomitant]

REACTIONS (7)
  - BUNDLE BRANCH BLOCK RIGHT [None]
  - CHEST PAIN [None]
  - INJECTION SITE ERYTHEMA [None]
  - INJECTION SITE IRRITATION [None]
  - INJECTION SITE PRURITUS [None]
  - LOWER RESPIRATORY TRACT INFECTION [None]
  - PNEUMONIA [None]
